FAERS Safety Report 4367857-4 (Version None)
Quarter: 2004Q2

REPORT INFORMATION
  Report Type: 
  Country: None (occurrence: None)
  Receive Date: 20040601
  Receipt Date: 20040601
  Transmission Date: 20050107
  Serious: No
  Sender: FDA-Public Use
  Company Number: None

PATIENT
  Sex: Female
  Weight: 79.6 kg

DRUGS (8)
  1. OXACILLIN [Suspect]
     Indication: ABSCESS
     Dosage: 2GM EVERY 4 HO INTRAVENOUS
     Route: 042
     Dates: start: 20040517, end: 20040526
  2. OXACILLIN [Suspect]
     Indication: CELLULITIS
     Dosage: 2GM EVERY 4 HO INTRAVENOUS
     Route: 042
     Dates: start: 20040517, end: 20040526
  3. OXACILLIN [Suspect]
     Dosage: 2 GM EVERY 4 HO INTRAVENOUS
     Route: 042
     Dates: start: 20040517, end: 20040526
  4. SYNTHROID [Concomitant]
  5. TYLENOL [Concomitant]
  6. RIFAMPIN [Concomitant]
  7. MILK OF MAGNESIA TAB [Concomitant]
  8. VICODIN [Concomitant]

REACTIONS (1)
  - RASH GENERALISED [None]
